FAERS Safety Report 5914904-1 (Version None)
Quarter: 2008Q4

REPORT INFORMATION
  Report Type: 
  Country: None (occurrence: None)
  Receive Date: 20081010
  Receipt Date: 20081008
  Transmission Date: 20090506
  Serious: Yes (Death)
  Sender: FDA-Public Use
  Company Number: PHBS2008FR05933

PATIENT
  Age: 65 Year
  Sex: Male

DRUGS (3)
  1. CYCLOSPORINE [Suspect]
     Indication: RENAL TRANSPLANT
     Route: 065
  2. MYCOPHENOLATE MOFETIL [Suspect]
     Indication: RENAL TRANSPLANT
  3. STEROIDS NOS [Concomitant]

REACTIONS (11)
  - ARTHRITIS INFECTIVE [None]
  - CHRONIC LYMPHOCYTIC LEUKAEMIA [None]
  - ERYSIPELAS [None]
  - HERPES ZOSTER [None]
  - LYMPHADENOPATHY [None]
  - LYMPHOCYTE COUNT INCREASED [None]
  - PNEUMONITIS [None]
  - SEPSIS [None]
  - SINUSITIS [None]
  - SPLENOMEGALY [None]
  - THROMBOCYTOPENIA [None]
